FAERS Safety Report 5627129-4 (Version None)
Quarter: 2008Q1

REPORT INFORMATION
  Report Type: 
  Country: None (occurrence: None)
  Receive Date: 20080212
  Receipt Date: 20080212
  Transmission Date: 20080703
  Serious: Yes (Death)
  Sender: FDA-Public Use
  Company Number: None

PATIENT
  Age: 64 Year
  Sex: Male
  Weight: 90.7194 kg

DRUGS (18)
  1. TRASYLOL [Suspect]
     Indication: CARDIAC OPERATION
     Dates: start: 20051207, end: 20051207
  2. ALBUMIN (HUMAN) [Concomitant]
  3. APROTININ [Concomitant]
  4. FUROSEMIDE [Concomitant]
  5. HEPARIN [Concomitant]
  6. INSULIN [Concomitant]
  7. LIDOCAINE SYRINGE [Concomitant]
  8. MAGNESIUM [Concomitant]
  9. MANNITO [Concomitant]
  10. PHENYLEPHRINE [Concomitant]
  11. PROCAINAMIDE [Concomitant]
  12. SHARPS HIGH K+ [Concomitant]
  13. SHARPS LOW K+ [Concomitant]
  14. SODIUM BICARBONATE [Concomitant]
  15. GEM PREMIER PANEL XII [Concomitant]
  16. ACT [Concomitant]
  17. HEPARIN ASSAY [Concomitant]
  18. HEPARIN DOSE RESPONSE TEST [Concomitant]

REACTIONS (3)
  - ARRHYTHMIA [None]
  - BLOOD POTASSIUM DECREASED [None]
  - RENAL FAILURE ACUTE [None]
